FAERS Safety Report 11058449 (Version 1)
Quarter: 2015Q2

REPORT INFORMATION
  Report Type: Spontaneous
  Country: US (occurrence: US)
  Receive Date: 20150423
  Receipt Date: 20150423
  Transmission Date: 20150821
  Serious: Yes (Hospitalization)
  Sender: FDA-Public Use
  Company Number: US-SUN PHARMACEUTICAL INDUSTRIES LTD-2015SUN01023

PATIENT
  Age: 30 Year
  Sex: Female

DRUGS (2)
  1. METHIMAZOLE 10 MG TABLET [Suspect]
     Active Substance: METHIMAZOLE
     Indication: HYPERTHYROIDISM
     Route: 065
  2. PROPRANOLOL [Concomitant]
     Active Substance: PROPRANOLOL\PROPRANOLOL HYDROCHLORIDE
     Dosage: INCREASED IN THE DOSE

REACTIONS (4)
  - Condition aggravated [Recovered/Resolved]
  - Angioedema [Recovered/Resolved]
  - Dyspnoea [Recovered/Resolved]
  - Hypersensitivity [Recovered/Resolved]
